FAERS Safety Report 4523236-8 (Version None)
Quarter: 2004Q4

REPORT INFORMATION
  Report Type: 
  Country: None (occurrence: None)
  Receive Date: 20041208
  Receipt Date: 20041208
  Transmission Date: 20050328
  Serious: No
  Sender: FDA-Public Use
  Company Number: None

PATIENT
  Age: 7 Year
  Sex: Male

DRUGS (1)
  1. RITALIN [Suspect]
     Dosage: 10 MG 1 1/2 QID
     Dates: start: 20041004, end: 20041129

REACTIONS (2)
  - ABNORMAL BEHAVIOUR [None]
  - PHARMACEUTICAL PRODUCT COMPLAINT [None]
